FAERS Safety Report 5110010-7 (Version None)
Quarter: 2006Q3

REPORT INFORMATION
  Report Type: 
  Country: None (occurrence: None)
  Receive Date: 20060731
  Receipt Date: 20060403
  Transmission Date: 20061208
  Serious: No
  Sender: FDA-Public Use
  Company Number: 2006PV011431

PATIENT
  Age: 57 Year
  Sex: Female
  Weight: 126.1 kg

DRUGS (3)
  1. BYETTA [Suspect]
     Indication: DIABETES MELLITUS NON-INSULIN-DEPENDENT
     Dosage: SEE IMAGE
     Route: 058
     Dates: start: 20060227, end: 20060327
  2. BYETTA [Suspect]
     Indication: DIABETES MELLITUS NON-INSULIN-DEPENDENT
     Dosage: SEE IMAGE
     Route: 058
     Dates: start: 20060328
  3. METFORMIN HCL [Concomitant]

REACTIONS (11)
  - ABDOMINAL PAIN UPPER [None]
  - BLOOD GLUCOSE DECREASED [None]
  - CONSTIPATION [None]
  - DECREASED APPETITE [None]
  - DYSPHONIA [None]
  - HEADACHE [None]
  - HYPOAESTHESIA [None]
  - NAUSEA [None]
  - PHARYNGOLARYNGEAL PAIN [None]
  - PRODUCTIVE COUGH [None]
  - TREMOR [None]
